FAERS Safety Report 17714865 (Version 1)
Quarter: 2020Q2

REPORT INFORMATION
  Report Type: Report from Study
  Country: US (occurrence: US)
  Receive Date: 20200427
  Receipt Date: 20200427
  Transmission Date: 20200714
  Serious: Yes (Hospitalization)
  Sender: FDA-Public Use
  Company Number: US-GENERICUS, INC.-2020GNR00013

PATIENT
  Age: 10 Year
  Sex: Female
  Weight: 25.85 kg

DRUGS (9)
  1. SMZ/TMP [Suspect]
     Active Substance: SULFAMETHOXAZOLE\TRIMETHOPRIM
     Dosage: UNK
     Dates: end: 202003
  2. TOBRAMYCIN. [Suspect]
     Active Substance: TOBRAMYCIN
     Indication: BURKHOLDERIA CEPACIA COMPLEX INFECTION
     Dosage: 300 MG, 2X/DAY
     Dates: start: 20200319, end: 202003
  3. TOBRAMYCIN (IV) [Suspect]
     Active Substance: TOBRAMYCIN
     Indication: BURKHOLDERIA CEPACIA COMPLEX INFECTION
     Dosage: UNK, 1X/DAY
     Route: 042
     Dates: start: 20200310, end: 202003
  4. CREON [Concomitant]
     Active Substance: PANCRELIPASE AMYLASE\PANCRELIPASE LIPASE\PANCRELIPASE PROTEASE
  5. PULMOZYME [Concomitant]
     Active Substance: DORNASE ALFA
  6. AZITHROMYCIN ANHYDROUS. [Suspect]
     Active Substance: AZITHROMYCIN ANHYDROUS
     Dosage: UNK
     Dates: end: 202003
  7. SUCRALFATE. [Concomitant]
     Active Substance: SUCRALFATE
  8. TOBRAMYCIN. [Suspect]
     Active Substance: TOBRAMYCIN
     Indication: CYSTIC FIBROSIS
     Dosage: UNK, 2X/DAY
     Dates: start: 20200312, end: 202003
  9. OFLOXACIN. [Suspect]
     Active Substance: OFLOXACIN
     Dosage: UNK
     Dates: end: 202003

REACTIONS (7)
  - Off label use [Recovered/Resolved]
  - Oral pruritus [Recovered/Resolved]
  - Pharyngeal erythema [Recovered/Resolved]
  - Cheilitis [Recovered/Resolved]
  - Lip swelling [Recovered/Resolved]
  - Rash [Recovered/Resolved]
  - Chapped lips [Recovered/Resolved]

NARRATIVE: CASE EVENT DATE: 20200312
